FAERS Safety Report 7763488-4 (Version None)
Quarter: 2011Q3

REPORT INFORMATION
  Report Type: 
  Country: None (occurrence: None)
  Receive Date: 20110920
  Receipt Date: 20110824
  Transmission Date: 20111222
  Serious: Yes (Death, Hospitalization, Other)
  Sender: FDA-Public Use
  Company Number: US-BAXTER-2009BH003705

PATIENT
  Age: 77 Year
  Sex: Male
  Weight: 83 kg

DRUGS (74)
  1. HEPARIN SODIUM INJECTION [Suspect]
     Route: 058
     Dates: start: 20070906, end: 20070923
  2. HEPARIN SODIUM INJECTION [Suspect]
     Route: 058
     Dates: start: 20070906, end: 20070923
  3. HEPARIN SODIUM INJECTION [Suspect]
     Route: 065
     Dates: start: 20071001
  4. HEPARIN SODIUM INJECTION [Suspect]
     Route: 065
     Dates: start: 20071110, end: 20071117
  5. HEPARIN SODIUM INJECTION [Suspect]
     Route: 065
     Dates: start: 20080211, end: 20080213
  6. BICITRA [Concomitant]
     Indication: PRODUCT USED FOR UNKNOWN INDICATION
     Route: 065
  7. AMIODARONE HCL [Concomitant]
     Indication: PRODUCT USED FOR UNKNOWN INDICATION
     Route: 048
  8. DARVOCET-N 50 [Concomitant]
     Indication: PAIN
     Route: 065
     Dates: start: 20071022
  9. HEPARIN SODIUM INJECTION [Suspect]
     Route: 065
     Dates: start: 20071027
  10. HEPARIN SODIUM INJECTION [Suspect]
     Route: 065
     Dates: start: 20080301
  11. HEPARIN SODIUM 5,000 UNITS IN DEXTROSE 5% [Suspect]
     Route: 065
  12. PANTOPRAZOLE [Concomitant]
     Indication: PRODUCT USED FOR UNKNOWN INDICATION
     Route: 048
  13. LASIX [Concomitant]
     Indication: PRODUCT USED FOR UNKNOWN INDICATION
     Route: 065
     Dates: start: 19950101
  14. GLIMEPIRIDE [Concomitant]
     Indication: PRODUCT USED FOR UNKNOWN INDICATION
     Route: 048
  15. NOVOLIN 70/30 [Concomitant]
     Indication: PRODUCT USED FOR UNKNOWN INDICATION
     Route: 065
  16. HEPARIN SODIUM INJECTION [Suspect]
     Route: 058
     Dates: start: 20071025, end: 20071026
  17. HEPARIN SODIUM INJECTION [Suspect]
     Route: 058
     Dates: start: 20071025, end: 20071026
  18. HEPARIN SODIUM INJECTION [Suspect]
     Route: 065
     Dates: start: 20071031
  19. HEPARIN SODIUM INJECTION [Suspect]
     Route: 065
     Dates: start: 20071027
  20. HEPARIN SODIUM 1,000 UNITS AND SODIUM CHLORIDE 0.9% [Suspect]
     Indication: DIALYSIS
     Route: 042
     Dates: start: 20071001
  21. LEXAPRO [Concomitant]
     Indication: PRODUCT USED FOR UNKNOWN INDICATION
     Route: 048
  22. LANTUS [Concomitant]
     Indication: PRODUCT USED FOR UNKNOWN INDICATION
     Route: 048
  23. ALDACTONE [Concomitant]
     Indication: PRODUCT USED FOR UNKNOWN INDICATION
     Route: 065
     Dates: start: 20040101
  24. ATORVASTATIN CALCIUM [Concomitant]
     Indication: PRODUCT USED FOR UNKNOWN INDICATION
     Route: 065
  25. VALSARTAN [Concomitant]
     Indication: PRODUCT USED FOR UNKNOWN INDICATION
     Route: 065
     Dates: start: 20070506
  26. ALLOPURINOL [Concomitant]
     Indication: PRODUCT USED FOR UNKNOWN INDICATION
     Route: 048
     Dates: start: 20010101
  27. TAMSULOSIN HCL [Concomitant]
     Indication: PRODUCT USED FOR UNKNOWN INDICATION
     Route: 065
     Dates: start: 20040101
  28. NYSTATIN [Concomitant]
     Indication: PRODUCT USED FOR UNKNOWN INDICATION
     Route: 065
  29. SIMVASTATIN [Concomitant]
     Indication: PRODUCT USED FOR UNKNOWN INDICATION
     Route: 048
  30. HEPARIN SODIUM INJECTION [Suspect]
     Route: 058
     Dates: start: 20071026
  31. HEPARIN SODIUM INJECTION [Suspect]
     Route: 065
     Dates: start: 20071110, end: 20071117
  32. ACETYLSALICYLIC ACID SRT [Concomitant]
     Indication: PRODUCT USED FOR UNKNOWN INDICATION
     Route: 048
  33. METOLAZONE [Concomitant]
     Indication: PRODUCT USED FOR UNKNOWN INDICATION
     Route: 065
     Dates: start: 19950101
  34. ZETIA [Concomitant]
     Indication: PRODUCT USED FOR UNKNOWN INDICATION
     Route: 065
  35. DOCUSATE SODIUM [Concomitant]
     Indication: PRODUCT USED FOR UNKNOWN INDICATION
     Route: 048
  36. ACTOS [Concomitant]
     Indication: PRODUCT USED FOR UNKNOWN INDICATION
     Route: 065
     Dates: start: 20070614
  37. INSULIN DETEMIR [Concomitant]
     Indication: PRODUCT USED FOR UNKNOWN INDICATION
     Route: 058
     Dates: start: 19800101
  38. ALBUTEROL [Concomitant]
     Indication: PRODUCT USED FOR UNKNOWN INDICATION
     Route: 055
  39. VYTORIN [Concomitant]
     Indication: PRODUCT USED FOR UNKNOWN INDICATION
     Route: 065
     Dates: start: 20070823
  40. HEPARIN SODIUM INJECTION [Suspect]
     Indication: THROMBOSIS PROPHYLAXIS
     Route: 010
     Dates: start: 20070906
  41. HEPARIN SODIUM INJECTION [Suspect]
     Route: 058
     Dates: start: 20070906, end: 20070923
  42. HEPARIN SODIUM INJECTION [Suspect]
     Route: 065
     Dates: start: 20071001
  43. HEPARIN SODIUM 1,000 UNITS AND SODIUM CHLORIDE 0.9% [Suspect]
     Route: 042
     Dates: start: 20071110, end: 20071117
  44. IRON SULFATETHIAMIN COMPOUND TAB [Concomitant]
     Indication: PRODUCT USED FOR UNKNOWN INDICATION
     Route: 065
     Dates: start: 20070813
  45. DIGOXIN [Concomitant]
     Indication: PRODUCT USED FOR UNKNOWN INDICATION
     Route: 048
  46. WARFARIN SODIUM [Concomitant]
     Route: 065
     Dates: start: 20010101
  47. HEPARIN SODIUM INJECTION [Suspect]
     Indication: COAGULOPATHY
     Route: 010
     Dates: start: 20070906
  48. HEPARIN SODIUM INJECTION [Suspect]
     Route: 058
     Dates: start: 20071025, end: 20071026
  49. HEPARIN SODIUM INJECTION [Suspect]
     Route: 065
     Dates: start: 20071031
  50. HEPARIN SODIUM INJECTION [Suspect]
     Route: 058
     Dates: start: 20071026
  51. FLAGYL [Concomitant]
     Indication: PRODUCT USED FOR UNKNOWN INDICATION
     Route: 065
  52. AMLODIPINE BESYLATE AND VALSARTAN [Concomitant]
     Indication: PRODUCT USED FOR UNKNOWN INDICATION
     Route: 065
     Dates: start: 20070523
  53. ALBUTEROL [Concomitant]
     Route: 055
  54. HEPARIN SODIUM INJECTION [Suspect]
     Indication: HAEMODIALYSIS
     Route: 010
     Dates: start: 20070906
  55. HEPARIN SODIUM INJECTION [Suspect]
     Route: 065
     Dates: start: 20071031
  56. HEPARIN SODIUM INJECTION [Suspect]
     Route: 058
     Dates: start: 20071026
  57. HEPARIN SODIUM INJECTION [Suspect]
     Route: 065
     Dates: start: 20071027
  58. HEPARIN SODIUM INJECTION [Suspect]
     Route: 065
     Dates: start: 20080301
  59. HEPARIN SODIUM 1,000 UNITS AND SODIUM CHLORIDE 0.9% [Suspect]
     Route: 042
     Dates: start: 20071027
  60. HEPARIN SODIUM 5,000 UNITS IN DEXTROSE 5% [Suspect]
     Indication: IMPLANTABLE DEFIBRILLATOR INSERTION
     Route: 041
     Dates: start: 20070901, end: 20071001
  61. WARFARIN SODIUM [Concomitant]
     Indication: PRODUCT USED FOR UNKNOWN INDICATION
     Route: 065
     Dates: start: 20010101
  62. METOPROLOL TARTRATE [Concomitant]
     Indication: PRODUCT USED FOR UNKNOWN INDICATION
     Route: 065
     Dates: start: 20030101
  63. POTASSIUM CHLORIDE [Concomitant]
     Indication: PRODUCT USED FOR UNKNOWN INDICATION
     Route: 065
     Dates: start: 20010101
  64. HEPARIN SODIUM INJECTION [Suspect]
     Route: 065
     Dates: start: 20071001
  65. HEPARIN SODIUM INJECTION [Suspect]
     Route: 065
     Dates: start: 20071110, end: 20071117
  66. HEPARIN SODIUM INJECTION [Suspect]
     Route: 065
     Dates: start: 20080211, end: 20080213
  67. HEPARIN SODIUM INJECTION [Suspect]
     Route: 065
     Dates: start: 20080211, end: 20080213
  68. HEPARIN SODIUM INJECTION [Suspect]
     Route: 065
     Dates: start: 20080301
  69. EZETIMIBE [Concomitant]
     Indication: PRODUCT USED FOR UNKNOWN INDICATION
     Route: 048
  70. ARANESP [Concomitant]
     Indication: ANAEMIA
     Route: 048
  71. INSULIN [Concomitant]
     Indication: PRODUCT USED FOR UNKNOWN INDICATION
     Route: 058
  72. REGLAN [Concomitant]
     Indication: PRODUCT USED FOR UNKNOWN INDICATION
     Route: 065
  73. COREG [Concomitant]
     Indication: PRODUCT USED FOR UNKNOWN INDICATION
     Route: 048
  74. TYLENOL W/ CODEINE NO. 3 [Concomitant]
     Indication: PRODUCT USED FOR UNKNOWN INDICATION
     Route: 065

REACTIONS (19)
  - RENAL FAILURE [None]
  - THROMBOCYTOPENIA [None]
  - HYPOGLYCAEMIA [None]
  - MUSCULAR WEAKNESS [None]
  - AZOTAEMIA [None]
  - CARDIOGENIC SHOCK [None]
  - HAEMATOMA INFECTION [None]
  - CARDIAC FAILURE CONGESTIVE [None]
  - VIITH NERVE PARALYSIS [None]
  - HEART DISEASE CONGENITAL [None]
  - VENTRICULAR TACHYCARDIA [None]
  - HYPOTENSION [None]
  - PYREXIA [None]
  - CARDIAC FAILURE [None]
  - ACUTE MYOCARDIAL INFARCTION [None]
  - RESPIRATORY FAILURE [None]
  - RETROPERITONEAL HAEMATOMA [None]
  - SERRATIA BACTERAEMIA [None]
  - ATRIAL FIBRILLATION [None]
